FAERS Safety Report 26044364 (Version 1)
Quarter: 2025Q4

REPORT INFORMATION
  Report Type: Spontaneous
  Country: US (occurrence: US)
  Receive Date: 20251114
  Receipt Date: 20251114
  Transmission Date: 20260118
  Serious: Yes (Death, Other)
  Sender: JOHNSON AND JOHNSON
  Company Number: US-JNJFOC-20251144137

PATIENT
  Age: 56 Year
  Sex: Female

DRUGS (1)
  1. CARVYKTI [Suspect]
     Active Substance: CILTACABTAGENE AUTOLEUCEL
     Indication: Plasma cell myeloma
     Route: 065
     Dates: start: 202312

REACTIONS (3)
  - Acute myelomonocytic leukaemia [Fatal]
  - Immune effector cell-associated HLH-like syndrome [Unknown]
  - Cytokine release syndrome [Recovered/Resolved]
